FAERS Safety Report 6412603-3 (Version None)
Quarter: 2009Q4

REPORT INFORMATION
  Report Type: 
  Country: None (occurrence: None)
  Receive Date: 20091023
  Receipt Date: 20091013
  Transmission Date: 20100525
  Serious: Yes (Hospitalization)
  Sender: FDA-Public Use
  Company Number: PHHY2009IE44133

PATIENT
  Sex: Male

DRUGS (1)
  1. CLOZARIL [Suspect]
     Indication: SCHIZOPHRENIA
     Dosage: 500 MG DAILY
     Dates: start: 19930616

REACTIONS (3)
  - APPENDICITIS [None]
  - NEUTROPHIL COUNT INCREASED [None]
  - WHITE BLOOD CELL COUNT INCREASED [None]
